FAERS Safety Report 7800380-0 (Version None)
Quarter: 2011Q4

REPORT INFORMATION
  Report Type: 
  Country: None (occurrence: None)
  Receive Date: 20111006
  Receipt Date: 20110927
  Transmission Date: 20120403
  Serious: Yes (Other)
  Sender: FDA-Public Use
  Company Number: US-JNJFOC-20110801488

PATIENT
  Sex: Male

DRUGS (2)
  1. SUPRAX [Concomitant]
     Route: 048
  2. NUCYNTA [Suspect]
     Indication: TONSILLECTOMY
     Route: 048
     Dates: start: 20110707, end: 20110714

REACTIONS (1)
  - HAEMORRHAGE [None]
